FAERS Safety Report 13256526 (Version 1)
Quarter: 2017Q1

REPORT INFORMATION
  Report Type: Spontaneous
  Country: US (occurrence: US)
  Receive Date: 20170221
  Receipt Date: 20170221
  Transmission Date: 20170428
  Serious: Yes (Other)
  Sender: FDA-Public Use
  Company Number: US-PFIZER INC-2017066098

PATIENT
  Age: 51 Year
  Sex: Female

DRUGS (1)
  1. XELJANZ XR [Suspect]
     Active Substance: TOFACITINIB CITRATE
     Indication: RHEUMATOID ARTHRITIS
     Dosage: 11 MG, 1X/DAY
     Route: 048
     Dates: start: 20161121

REACTIONS (7)
  - Asthenia [Unknown]
  - Fatigue [Unknown]
  - Ligament injury [Unknown]
  - Limb injury [Unknown]
  - Hyperhidrosis [Unknown]
  - Cold sweat [Unknown]
  - Panic attack [Unknown]
